FAERS Safety Report 5194601-3 (Version None)
Quarter: 2006Q4

REPORT INFORMATION
  Report Type: 
  Country: None (occurrence: None)
  Receive Date: 20061229
  Receipt Date: 20061221
  Transmission Date: 20070319
  Serious: Yes (Hospitalization, Other)
  Sender: FDA-Public Use
  Company Number: US-JNJFOC-20061206001

PATIENT
  Sex: Female

DRUGS (11)
  1. REMICADE [Suspect]
     Route: 042
  2. REMICADE [Suspect]
     Indication: RHEUMATOID ARTHRITIS
     Route: 042
  3. HUMIRA [Concomitant]
  4. NEXIUM [Concomitant]
  5. VYTORIN [Concomitant]
  6. COREG [Concomitant]
     Dosage: DOSE: 3.125
  7. CITRACAL [Concomitant]
  8. FUROSEMIDE [Concomitant]
  9. K-DUR 10 [Concomitant]
  10. SYNTHROID [Concomitant]
  11. MULTI-VITAMIN [Concomitant]

REACTIONS (2)
  - LYMPH NODE CANCER METASTATIC [None]
  - MYOCARDIAL INFARCTION [None]
